FAERS Safety Report 9704474 (Version 4)
Quarter: 2015Q1

REPORT INFORMATION
  Report Type: Spontaneous
  Country: US (occurrence: US)
  Receive Date: 20131122
  Receipt Date: 20150313
  Transmission Date: 20150721
  Serious: Yes (Hospitalization, Congenital Anomaly)
  Sender: FDA-Public Use
  Company Number: US-AMGEN-USASP2013082018

PATIENT
  Sex: Female
  Weight: 4.14 kg

DRUGS (3)
  1. ENBREL [Suspect]
     Active Substance: ETANERCEPT
     Indication: EXPOSURE DURING PREGNANCY
     Dosage: 50 MG, QWK
     Route: 064
     Dates: start: 20130207
  2. INFLUENZA VACCIN [Suspect]
     Active Substance: INFLUENZA VIRUS VACCINE
     Indication: PRODUCT USED FOR UNKNOWN INDICATION
     Dosage: UNK
     Route: 064
  3. PRENATAL VITAMINS                  /02014401/ [Suspect]
     Active Substance: VITAMINS
     Indication: PRODUCT USED FOR UNKNOWN INDICATION
     Dosage: UNK UNK, QD
     Route: 064
     Dates: start: 20130605, end: 20140125

REACTIONS (4)
  - Blood glucose decreased [Unknown]
  - Ultrasound abdomen abnormal [Unknown]
  - Congenital cystic kidney disease [Unknown]
  - Imperforate hymen [Recovered/Resolved]

NARRATIVE: CASE EVENT DATE: 20130913
